FAERS Safety Report 25740453 (Version 1)
Quarter: 2025Q3

REPORT INFORMATION
  Report Type: Spontaneous
  Country: BR (occurrence: BR)
  Receive Date: 20250829
  Receipt Date: 20250829
  Transmission Date: 20251020
  Serious: Yes (Hospitalization, Other)
  Sender: KYOWA
  Company Number: BR-KYOWAKIRIN-2025KK016902

PATIENT

DRUGS (1)
  1. CRYSVITA [Suspect]
     Active Substance: BUROSUMAB-TWZA
     Indication: Product used for unknown indication
     Route: 065

REACTIONS (2)
  - Acute coronary syndrome [Unknown]
  - Chest pain [Unknown]
